FAERS Safety Report 13282253 (Version 1)
Quarter: 2017Q1

REPORT INFORMATION
  Report Type: Spontaneous
  Country: US (occurrence: US)
  Receive Date: 20170301
  Receipt Date: 20170301
  Transmission Date: 20170428
  Serious: No
  Sender: FDA-Public Use
  Company Number: None

PATIENT
  Age: 81 Year
  Sex: Female
  Weight: 54.48 kg

DRUGS (11)
  1. PREDNISONE. [Concomitant]
     Active Substance: PREDNISONE
  2. XANAX [Concomitant]
     Active Substance: ALPRAZOLAM
  3. PROBIOTIC [Concomitant]
     Active Substance: PROBIOTICS NOS
  4. SINGULAIR [Concomitant]
     Active Substance: MONTELUKAST SODIUM
  5. TOPAMAX [Suspect]
     Active Substance: TOPIRAMATE
     Indication: NECK PAIN
     Dosage: 1/2 PILL FOR 2 WKS. THEN 1 PILL AT BEDTIME 1 AT BEDTIME MOUTH?
     Route: 048
     Dates: start: 20161229, end: 20170131
  6. PROTONIX [Concomitant]
     Active Substance: PANTOPRAZOLE SODIUM
  7. DULERA [Concomitant]
     Active Substance: FORMOTEROL FUMARATE DIHYDRATE\MOMETASONE FUROATE
  8. TOPAMAX [Suspect]
     Active Substance: TOPIRAMATE
     Indication: MUSCULOSKELETAL PAIN
     Dosage: 1/2 PILL FOR 2 WKS. THEN 1 PILL AT BEDTIME 1 AT BEDTIME MOUTH?
     Route: 048
     Dates: start: 20161229, end: 20170131
  9. NASONEX [Concomitant]
     Active Substance: MOMETASONE FUROATE
  10. SYNTHROID [Concomitant]
     Active Substance: LEVOTHYROXINE SODIUM
  11. VITAMIN D3 [Concomitant]
     Active Substance: CHOLECALCIFEROL

REACTIONS (4)
  - Rash pruritic [None]
  - Dizziness [None]
  - Mood altered [None]
  - Diplopia [None]

NARRATIVE: CASE EVENT DATE: 20170125
